FAERS Safety Report 21470893 (Version 1)
Quarter: 2022Q4

REPORT INFORMATION
  Report Type: Report from Study
  Country: CA (occurrence: CA)
  Receive Date: 20221018
  Receipt Date: 20221018
  Transmission Date: 20230113
  Serious: Yes (Hospitalization, Other)
  Sender: FDA-Public Use
  Company Number: CA-BoehringerIngelheim-2021-BI-117635

PATIENT
  Age: 77 Year
  Sex: Male

DRUGS (5)
  1. OFEV [Suspect]
     Active Substance: NINTEDANIB
     Indication: Idiopathic pulmonary fibrosis
     Route: 048
     Dates: start: 20210421, end: 202210
  2. OFEV [Suspect]
     Active Substance: NINTEDANIB
     Route: 048
     Dates: start: 20221012
  3. VIVID [Concomitant]
     Indication: Product used for unknown indication
  4. FUROSEMIDE [Concomitant]
     Active Substance: FUROSEMIDE
     Indication: Oedema
  5. CANDESARTAN [Concomitant]
     Active Substance: CANDESARTAN
     Indication: Blood pressure measurement

REACTIONS (29)
  - Dizziness [Recovering/Resolving]
  - Cardiac failure [Recovered/Resolved]
  - Dizziness [Unknown]
  - Fall [Recovered/Resolved]
  - Abdominal pain upper [Recovered/Resolved]
  - Chest pain [Recovered/Resolved]
  - Dyspnoea [Recovered/Resolved]
  - Nausea [Recovered/Resolved]
  - Vomiting [Recovered/Resolved]
  - Abdominal discomfort [Recovered/Resolved]
  - Weight decreased [Recovering/Resolving]
  - Chest pain [Recovering/Resolving]
  - Peripheral swelling [Recovering/Resolving]
  - Coccydynia [Not Recovered/Not Resolved]
  - Headache [Not Recovered/Not Resolved]
  - Dizziness [Unknown]
  - Vertigo [Recovered/Resolved]
  - Arthropathy [Not Recovered/Not Resolved]
  - Headache [Recovered/Resolved with Sequelae]
  - Dizziness [Recovering/Resolving]
  - Dizziness [Recovered/Resolved]
  - Vertigo [Recovering/Resolving]
  - Dizziness [Recovering/Resolving]
  - Gait disturbance [Not Recovered/Not Resolved]
  - Abdominal pain [Not Recovered/Not Resolved]
  - Food intolerance [Not Recovered/Not Resolved]
  - Pleural effusion [Recovered/Resolved]
  - Loss of consciousness [Not Recovered/Not Resolved]
  - Intentional product use issue [Recovered/Resolved]

NARRATIVE: CASE EVENT DATE: 20210601
